FAERS Safety Report 5340775-0 (Version None)
Quarter: 2007Q2

REPORT INFORMATION
  Report Type: 
  Country: None (occurrence: None)
  Receive Date: 20070531
  Receipt Date: 20070518
  Transmission Date: 20071010
  Serious: Yes (Hospitalization, Other)
  Sender: FDA-Public Use
  Company Number: US-SHR-US-2007-014274

PATIENT
  Age: 25 Year
  Sex: Female
  Weight: 59.864 kg

DRUGS (9)
  1. BETASERON [Suspect]
     Indication: RELAPSING-REMITTING MULTIPLE SCLEROSIS
     Dosage: 8 MIU, EVERY 2D
     Route: 058
     Dates: start: 20060419
  2. THERAFLU                                /USA/ [Suspect]
     Dates: start: 20070301
  3. CHI TEA [Suspect]
     Dates: start: 20070301
  4. ALEVE [Suspect]
     Dates: start: 20070301
  5. LORAZEPAM [Concomitant]
     Dosage: 1 TAB(S), EVERY 8H
     Route: 048
     Dates: start: 20070222
  6. PREDNISONE TAB [Concomitant]
     Dosage: 4 TAB(S), 1X/DAY
     Route: 048
     Dates: start: 20070303, end: 20070309
  7. PREDNISONE TAB [Concomitant]
     Dosage: 3 TAB(S), 1X/DAY
     Route: 048
     Dates: start: 20070310, end: 20070316
  8. PREDNISONE TAB [Concomitant]
     Dosage: 2 TAB(S), 1X/DAY
     Route: 048
     Dates: start: 20070317, end: 20070323
  9. PREDNISONE TAB [Concomitant]
     Dosage: 1 TAB(S), 1X/DAY
     Route: 048
     Dates: start: 20070324, end: 20070330

REACTIONS (5)
  - CONVULSION [None]
  - INFLUENZA LIKE ILLNESS [None]
  - LOSS OF CONSCIOUSNESS [None]
  - PARALYSIS [None]
  - VOMITING [None]
